FAERS Safety Report 10083235 (Version 1)
Quarter: 2014Q2

REPORT INFORMATION
  Report Type: Spontaneous
  Country: US (occurrence: None)
  Receive Date: 20140415
  Receipt Date: 20140415
  Transmission Date: 20141212
  Serious: Yes (Other)
  Sender: FDA-Public Use
  Company Number: None

PATIENT
  Age: 51 Year
  Sex: Male
  Weight: 108.86 kg

DRUGS (1)
  1. TAMIFLU 75 MG ROCHE [Suspect]
     Indication: INFLUENZA
     Dosage: 1 PILL TWICE DAILY, TAKEN BY MOUTH
     Route: 048
     Dates: start: 20140404, end: 20140406

REACTIONS (4)
  - Nausea [None]
  - Vomiting [None]
  - Gastrointestinal haemorrhage [None]
  - Haematemesis [None]
